FAERS Safety Report 22302849 (Version 6)
Quarter: 2025Q4

REPORT INFORMATION
  Report Type: Report from Study
  Country: US (occurrence: US)
  Receive Date: 20230510
  Receipt Date: 20251120
  Transmission Date: 20260119
  Serious: Yes (Other)
  Sender: TAKEDA
  Company Number: US-TAKEDA-2022TUS061678

PATIENT
  Sex: Female

DRUGS (5)
  1. HUMAN IMMUNOGLOBULIN G [Suspect]
     Active Substance: HUMAN IMMUNOGLOBULIN G
     Indication: Primary immunodeficiency syndrome
     Dosage: 2 GRAM
  2. HUMAN IMMUNOGLOBULIN G [Suspect]
     Active Substance: HUMAN IMMUNOGLOBULIN G
     Indication: Immunodeficiency common variable
     Dosage: UNK
  3. LEVAQUIN [Suspect]
     Active Substance: LEVOFLOXACIN
     Indication: Product used for unknown indication
     Dosage: UNK
  4. COVID-19 VACCINE NOS [Suspect]
     Active Substance: COVID-19 VACCINE
     Indication: Product used for unknown indication
     Dosage: UNK
  5. PROLIA [Suspect]
     Active Substance: DENOSUMAB
     Indication: Product used for unknown indication
     Dosage: UNK

REACTIONS (29)
  - Pneumonia [Unknown]
  - Demyelination [Unknown]
  - Multiple allergies [Unknown]
  - Blood pressure decreased [Unknown]
  - Heart rate decreased [Unknown]
  - Gastric dilatation [Unknown]
  - Rash [Unknown]
  - Gait inability [Unknown]
  - Trigeminal nerve disorder [Unknown]
  - Tooth loss [Unknown]
  - Herpes zoster [Unknown]
  - Fall [Unknown]
  - Rotator cuff syndrome [Unknown]
  - Joint injury [Unknown]
  - Food allergy [Unknown]
  - Chondrocalcinosis [Unknown]
  - Osteoarthritis [Unknown]
  - Weight increased [Unknown]
  - Muscle strain [Unknown]
  - Illness [Unknown]
  - Periarthritis [Unknown]
  - Cystitis [Unknown]
  - Gout [Unknown]
  - Eye infection [Unknown]
  - Autonomic nervous system imbalance [Unknown]
  - Nerve injury [Unknown]
  - Flatulence [Unknown]
  - Headache [Unknown]
  - Migraine [Unknown]
